FAERS Safety Report 23291727 (Version 1)
Quarter: 2023Q4

REPORT INFORMATION
  Report Type: Spontaneous
  Country: US (occurrence: US)
  Receive Date: 20231213
  Receipt Date: 20231213
  Transmission Date: 20240109
  Serious: No
  Sender: FDA-Public Use
  Company Number: US-ABBVIE-5536544

PATIENT
  Sex: Female

DRUGS (2)
  1. IMBRUVICA [Suspect]
     Active Substance: IBRUTINIB
     Indication: Product used for unknown indication
     Dosage: TAKE 1 CAPSULE EVERY OTHER DAY  (FORM STRENGTH -  140 MG)
     Route: 048
  2. IMBRUVICA [Suspect]
     Active Substance: IBRUTINIB
     Indication: Product used for unknown indication
     Dosage: FORM STRENGTH -  140 MG - TAKE 2 CAPSULES BY MOUTH ONCE DAILY
     Route: 048
     Dates: start: 20200218

REACTIONS (1)
  - Hepatic enzyme abnormal [Unknown]
